FAERS Safety Report 22587273 (Version 2)
Quarter: 2023Q4

REPORT INFORMATION
  Report Type: Other
  Country: CA (occurrence: CA)
  Receive Date: 20230612
  Receipt Date: 20231107
  Transmission Date: 20240110
  Serious: Yes (Other)
  Sender: FDA-Public Use
  Company Number: CA-TOLMAR, INC.-23CA040924

PATIENT
  Age: 66 Year
  Sex: Male

DRUGS (3)
  1. ELIGARD [Suspect]
     Active Substance: LEUPROLIDE ACETATE
     Indication: Prostate cancer
     Dosage: 22.5 MILLIGRAM, Q 3 MONTH
     Route: 058
     Dates: start: 20221130
  2. ELIGARD [Suspect]
     Active Substance: LEUPROLIDE ACETATE
     Dosage: 22.5 MILLIGRAM, Q 3 MONTH
     Route: 058
     Dates: start: 20230516
  3. ELIGARD [Suspect]
     Active Substance: LEUPROLIDE ACETATE
     Dosage: 22.5 MILLIGRAM, Q 3 MONTH
     Route: 058
     Dates: start: 20230809, end: 20231025

REACTIONS (7)
  - Blood pressure increased [Not Recovered/Not Resolved]
  - Bowel movement irregularity [Unknown]
  - Headache [Unknown]
  - Myalgia [Unknown]
  - Arthralgia [Unknown]
  - Asthenia [Unknown]
  - Hot flush [Unknown]

NARRATIVE: CASE EVENT DATE: 20221101
